FAERS Safety Report 6242431-3 (Version None)
Quarter: 2009Q2

REPORT INFORMATION
  Report Type: 
  Country: None (occurrence: None)
  Receive Date: 20090624
  Receipt Date: 20090611
  Transmission Date: 20091009
  Serious: Yes (Hospitalization, Other)
  Sender: FDA-Public Use
  Company Number: BR-JNJFOC-20090607104

PATIENT
  Age: 59 Year
  Sex: Male

DRUGS (13)
  1. DARUNAVIR [Suspect]
     Route: 048
  2. DARUNAVIR [Suspect]
     Indication: HIV INFECTION
     Route: 048
  3. MARAVIROC [Suspect]
     Route: 048
  4. MARAVIROC [Suspect]
     Indication: HIV INFECTION
     Route: 048
  5. RALTEGRAVIR [Suspect]
     Route: 048
  6. RALTEGRAVIR [Suspect]
     Indication: HIV INFECTION
     Route: 048
  7. RITONAVIR [Suspect]
     Route: 048
  8. RITONAVIR [Suspect]
     Indication: HIV INFECTION
     Route: 048
  9. GANCICLOVIR [Suspect]
  10. GANCICLOVIR [Suspect]
     Indication: DRUG USE FOR UNKNOWN INDICATION
  11. ENFUVIRTIDE [Concomitant]
     Indication: HIV INFECTION
     Route: 058
  12. CHLOROQUINE [Concomitant]
  13. BUSCOPAN [Concomitant]
     Indication: ABDOMINAL PAIN

REACTIONS (6)
  - ABDOMINAL PAIN [None]
  - CARDIAC FAILURE CONGESTIVE [None]
  - DERMATITIS BULLOUS [None]
  - HEPATITIS ACUTE [None]
  - IMMUNE RECONSTITUTION SYNDROME [None]
  - RETINAL DETACHMENT [None]
